FAERS Safety Report 7522900-6 (Version None)
Quarter: 2011Q2

REPORT INFORMATION
  Report Type: 
  Country: None (occurrence: None)
  Receive Date: 20110603
  Receipt Date: 20110528
  Transmission Date: 20111010
  Serious: Yes (Death, Other)
  Sender: FDA-Public Use
  Company Number: PHHY2011MX46904

PATIENT
  Sex: Female

DRUGS (1)
  1. EXFORGE [Suspect]
     Indication: HYPERTENSION
     Dosage: 160 MG VALS AND 10 MG AMLO, PER DAY
     Dates: start: 20101001, end: 20110501

REACTIONS (5)
  - DIABETIC COMPLICATION [None]
  - DEHYDRATION [None]
  - THROMBOSIS [None]
  - BLOOD POTASSIUM INCREASED [None]
  - HYPOTENSION [None]
